FAERS Safety Report 5270246-1 (Version None)
Quarter: 2007Q1

REPORT INFORMATION
  Report Type: 
  Country: None (occurrence: None)
  Receive Date: 20061214
  Receipt Date: 20061020
  Transmission Date: 20070707
  Serious: No
  Sender: FDA-Public Use
  Company Number: IND-AE-06-SAN-045

PATIENT
  Sex: Male

DRUGS (2)
  1. SANCTURA [Suspect]
  2. PROSCAR [Concomitant]

REACTIONS (1)
  - DYSPNOEA [None]
